FAERS Safety Report 4693489-4 (Version None)
Quarter: 2005Q2

REPORT INFORMATION
  Report Type: 
  Country: None (occurrence: None)
  Receive Date: 20050617
  Receipt Date: 20050616
  Transmission Date: 20051028
  Serious: Yes (Death, Other)
  Sender: FDA-Public Use
  Company Number: PHBS2005ES08574

PATIENT
  Age: 41 Year
  Sex: Male

DRUGS (2)
  1. SERTRALINE HCL [Concomitant]
     Dosage: 200 MG/D
     Route: 048
  2. LEPONEX [Suspect]
     Indication: SCHIZOPHRENIA
     Route: 048
     Dates: start: 19920826

REACTIONS (2)
  - ISCHAEMIC CARDIOMYOPATHY [None]
  - PNEUMONIA [None]
